FAERS Safety Report 10476738 (Version 2)
Quarter: 2014Q4

REPORT INFORMATION
  Report Type: Spontaneous
  Country: DE (occurrence: DE)
  Receive Date: 20140925
  Receipt Date: 20141024
  Transmission Date: 20150528
  Serious: Yes (Other)
  Sender: FDA-Public Use
  Company Number: GXKR2014DE003620

PATIENT
  Age: 56 Year
  Sex: Male

DRUGS (9)
  1. AZTREONAM. [Suspect]
     Active Substance: AZTREONAM
     Indication: OSTEOMYELITIS
     Dosage: 2 G, TID
  2. INSULIN [Concomitant]
     Active Substance: INSULIN NOS
     Dosage: 60 IU, UNK
     Route: 058
  3. RAMIPRIL. [Concomitant]
     Active Substance: RAMIPRIL
     Dosage: 5 MG, UNK
     Route: 048
  4. ROSIGLITAZONE [Concomitant]
     Active Substance: ROSIGLITAZONE
     Dosage: 4 MG, UNK
     Route: 065
  5. DIPHENHYDRAMINE [Interacting]
     Active Substance: DIPHENHYDRAMINE
     Indication: DRUG HYPERSENSITIVITY
     Route: 065
  6. LINEZOLID. [Interacting]
     Active Substance: LINEZOLID
     Route: 065
  7. ANTIBIOTICS [Suspect]
     Active Substance: UNSPECIFIED INGREDIENT
     Indication: OSTEOMYELITIS
     Route: 042
  8. METRONIDAZOLE. [Suspect]
     Active Substance: METRONIDAZOLE
     Indication: OSTEOMYELITIS
     Dosage: 500 MG, TID
     Route: 065
  9. CLOPIDOGREL [Concomitant]
     Active Substance: CLOPIDOGREL BISULFATE
     Dosage: 75 MG, UNK
     Route: 048

REACTIONS (6)
  - Hallucination [Recovered/Resolved]
  - Body temperature increased [Unknown]
  - Aggression [Recovered/Resolved]
  - Rash erythematous [Unknown]
  - Tachycardia [Unknown]
  - Delirium [Recovered/Resolved]
